FAERS Safety Report 5064202-6 (Version None)
Quarter: 2006Q3

REPORT INFORMATION
  Report Type: 
  Country: None (occurrence: None)
  Receive Date: 20060728
  Receipt Date: 20051108
  Transmission Date: 20061208
  Serious: No
  Sender: FDA-Public Use
  Company Number: US-GLAXOSMITHKLINE-A0581473A

PATIENT
  Age: 15 Year
  Sex: Female

DRUGS (1)
  1. ZANTAC [Suspect]
     Dosage: 300MG TWICE PER DAY
     Route: 048
     Dates: start: 20051024

REACTIONS (4)
  - HEADACHE [None]
  - INCORRECT DOSE ADMINISTERED [None]
  - MYDRIASIS [None]
  - VERTIGO [None]
